FAERS Safety Report 21096098 (Version 2)
Quarter: 2022Q3

REPORT INFORMATION
  Report Type: Spontaneous
  Country: US (occurrence: US)
  Receive Date: 20220718
  Receipt Date: 20220728
  Transmission Date: 20221027
  Serious: Yes (Other)
  Sender: FDA-Public Use
  Company Number: US-AMNEAL PHARMACEUTICALS-2022-AMRX-02072

PATIENT
  Sex: Male
  Weight: 92.517 kg

DRUGS (1)
  1. ISOTRETINOIN [Suspect]
     Active Substance: ISOTRETINOIN
     Indication: Sebaceous hyperplasia
     Dosage: 40 MILLIGRAM, DAILY
     Route: 048
     Dates: start: 20220519, end: 20220610

REACTIONS (1)
  - Skin cancer [Unknown]
